FAERS Safety Report 9492036 (Version 1)
Quarter: 2013Q3

REPORT INFORMATION
  Report Type: Spontaneous
  Country: JP (occurrence: None)
  Receive Date: 20130827
  Receipt Date: 20130827
  Transmission Date: 20140515
  Serious: Yes (Other)
  Sender: FDA-Public Use
  Company Number: TCI2013A5001

PATIENT
  Sex: 0

DRUGS (6)
  1. NESINA [Suspect]
     Indication: DIABETES MELLITUS
     Route: 048
  2. TAKEPRON (LANSOPRAZOLE) [Concomitant]
  3. DEPAS (ETIZOLAM) [Concomitant]
  4. GLUCOBAY (ACARBOSE) [Concomitant]
  5. METGLUCO (METFORMIN HYDROCHLORIDE) [Concomitant]
  6. CARDENALIN (DOXAZOSIN MESILATE) [Concomitant]

REACTIONS (1)
  - Hypoglycaemic unconsciousness [None]
